FAERS Safety Report 5258800-4 (Version None)
Quarter: 2007Q1

REPORT INFORMATION
  Report Type: 
  Country: None (occurrence: None)
  Receive Date: 20070306
  Receipt Date: 20070306
  Transmission Date: 20070707
  Serious: Yes (Other)
  Sender: FDA-Public Use
  Company Number: None

PATIENT
  Age: 37 Year
  Sex: Female
  Weight: 115.6672 kg

DRUGS (2)
  1. WELLBUTRIN XL [Suspect]
     Indication: DEPRESSION
     Dosage: 500 MG 1X PO
     Route: 048
     Dates: start: 20070218, end: 20070227
  2. WELLBUTRIN XL [Suspect]
     Indication: MENOPAUSAL DISORDER
     Dosage: 500 MG 1X PO
     Route: 048
     Dates: start: 20070218, end: 20070227

REACTIONS (3)
  - ASTHENIA [None]
  - HYPERSENSITIVITY [None]
  - MOUTH ULCERATION [None]
